FAERS Safety Report 14957059 (Version 2)
Quarter: 2018Q3

REPORT INFORMATION
  Report Type: Report from Study
  Country: JP (occurrence: JP)
  Receive Date: 20180531
  Receipt Date: 20180706
  Transmission Date: 20181010
  Serious: Yes (Hospitalization, Other)
  Sender: FDA-Public Use
  Company Number: JP-ACTELION-A-CH2018-166195

PATIENT
  Age: 50 Year
  Sex: Female
  Weight: 46.5 kg

DRUGS (11)
  1. REBAMIPIDE [Suspect]
     Active Substance: REBAMIPIDE
     Indication: GASTRITIS PROPHYLAXIS
     Dosage: 1 DF, TID
     Route: 048
     Dates: start: 20170124, end: 20170207
  2. TIZANIDINE. [Suspect]
     Active Substance: TIZANIDINE
     Indication: BACK PAIN
     Dosage: 1 MG, TID
     Route: 048
     Dates: start: 20170124, end: 20170207
  3. EPOPROSTENOL ACT [Suspect]
     Active Substance: EPOPROSTENOL
     Indication: PULMONARY ARTERIAL HYPERTENSION
     Dosage: 40 NG/KG, PER MIN
     Route: 042
     Dates: start: 20151211
  4. THYRADIN S [Concomitant]
     Active Substance: LEVOTHYROXINE SODIUM
  5. LOXONIN [Suspect]
     Active Substance: LOXOPROFEN SODIUM
     Indication: BACK PAIN
     Dosage: 1 DF, TID
     Route: 048
     Dates: start: 20170124, end: 20170207
  6. FERROUS CITRATE NA [Concomitant]
     Active Substance: SODIUM FERROUS CITRATE
  7. FLUITRAN [Concomitant]
     Active Substance: TRICHLORMETHIAZIDE
  8. SPIRONOLACTONE. [Concomitant]
     Active Substance: SPIRONOLACTONE
  9. VOLIBRIS [Suspect]
     Active Substance: AMBRISENTAN
     Indication: PULMONARY ARTERIAL HYPERTENSION
     Dosage: 2.5 MG, QD
     Route: 048
     Dates: end: 20170208
  10. REVATIO [Concomitant]
     Active Substance: SILDENAFIL CITRATE
  11. OXYGEN. [Concomitant]
     Active Substance: OXYGEN

REACTIONS (13)
  - Catheter site discharge [Recovered/Resolved]
  - Back pain [Recovered/Resolved]
  - Alanine aminotransferase increased [Recovered/Resolved]
  - Staphylococcal infection [Recovered/Resolved]
  - Catheter site infection [Recovered/Resolved]
  - Platelet count decreased [Recovering/Resolving]
  - Excessive granulation tissue [Recovered/Resolved]
  - Hepatic function abnormal [Recovered/Resolved]
  - Compression fracture [Recovered/Resolved]
  - Pseudomonas infection [Recovered/Resolved]
  - Aspartate aminotransferase increased [Recovered/Resolved]
  - Application site erythema [Recovered/Resolved]
  - Wound treatment [Recovered/Resolved]

NARRATIVE: CASE EVENT DATE: 20160909
